FAERS Safety Report 17726450 (Version 2)
Quarter: 2020Q2

REPORT INFORMATION
  Report Type: Report from Study
  Country: None (occurrence: BE)
  Receive Date: 20200430
  Receipt Date: 20200518
  Transmission Date: 20200714
  Serious: Yes (Hospitalization, Other)
  Sender: FDA-Public Use
  Company Number: BE-ABBVIE-20K-013-3383510-00

PATIENT
  Sex: Male
  Weight: 54 kg

DRUGS (4)
  1. DUODOPA [Suspect]
     Active Substance: CARBIDOPA\LEVODOPA
     Indication: PARKINSON^S DISEASE
     Dosage: UNKNOWN DOSAGES
     Route: 050
     Dates: start: 20150309, end: 20181213
  2. DUODOPA [Suspect]
     Active Substance: CARBIDOPA\LEVODOPA
     Dosage: MD=2ML, CD=2.2ML/HR DURING 16HRS, ED=2ML, ND=1.5ML/HR DURING 8HRS
     Route: 050
     Dates: start: 20181213, end: 20200405
  3. DUODOPA [Suspect]
     Active Substance: CARBIDOPA\LEVODOPA
     Dosage: UNKNOWN DOSAGES
     Route: 050
     Dates: start: 20200405, end: 20200514
  4. DUODOPA [Suspect]
     Active Substance: CARBIDOPA\LEVODOPA
     Dosage: MD=0ML, CD=1.7ML/HR DURING 16HRS, ED=0ML, ND=1.4ML/HR DURING 8HRS
     Route: 050
     Dates: start: 20200514

REACTIONS (3)
  - Movement disorder [Unknown]
  - Dyskinesia [Not Recovered/Not Resolved]
  - Coronavirus infection [Unknown]
